FAERS Safety Report 8427847-9 (Version None)
Quarter: 2012Q2

REPORT INFORMATION
  Report Type: 
  Country: None (occurrence: None)
  Receive Date: 20120611
  Receipt Date: 20120601
  Transmission Date: 20120825
  Serious: Yes (Other)
  Sender: FDA-Public Use
  Company Number: US-ASTRAZENECA-2012SE36793

PATIENT
  Age: 89 Year
  Sex: Female
  Weight: 88.5 kg

DRUGS (7)
  1. DIGOXIN [Concomitant]
  2. SEIZURE MEDICATION [Concomitant]
  3. VITAMIN TAB [Concomitant]
  4. POTASSIUM [Concomitant]
  5. REMERON [Concomitant]
  6. SEROQUEL [Suspect]
     Indication: BIPOLAR DISORDER
     Dosage: 25 MG IN THE MORNING AND 50 MG AT NIGHT
     Route: 048
  7. MAGNESIUM [Concomitant]

REACTIONS (5)
  - DRUG DOSE OMISSION [None]
  - ADVERSE REACTION [None]
  - DYSURIA [None]
  - BLOOD CHOLESTEROL ABNORMAL [None]
  - THYROID DISORDER [None]
